FAERS Safety Report 9122746 (Version 1)
Quarter: 2013Q1

REPORT INFORMATION
  Report Type: Spontaneous
  Country: US (occurrence: US)
  Receive Date: 20130227
  Receipt Date: 20130227
  Transmission Date: 20140127
  Serious: Yes (Other)
  Sender: FDA-Public Use
  Company Number: US-PFIZER INC-2013070551

PATIENT
  Sex: Female
  Weight: 89.8 kg

DRUGS (7)
  1. NORVASC [Suspect]
     Indication: HYPERTENSION
     Dosage: 5 MG, 1X/DAY
  2. NORVASC [Suspect]
     Dosage: 5 MG, AS NEEDED
  3. SPIRONOLACTONE [Suspect]
     Indication: HEART VALVE INCOMPETENCE
     Dosage: 25 MG, 1X/DAY
     Dates: end: 2012
  4. AMBIEN [Concomitant]
     Dosage: UNK
     Dates: end: 2012
  5. KLONOPIN [Concomitant]
     Dosage: UNK
     Dates: end: 2012
  6. LUVOX [Concomitant]
     Indication: OBSESSIVE-COMPULSIVE DISORDER
     Dosage: UNK
     Dates: end: 2012
  7. REQUIP [Concomitant]
     Indication: RESTLESS LEGS SYNDROME
     Dosage: 2 MG TWO TO THREE TIMES A DAY

REACTIONS (5)
  - Crush injury [Unknown]
  - Accident [Unknown]
  - Nerve injury [Unknown]
  - Laboratory test abnormal [Unknown]
  - Inappropriate schedule of drug administration [Unknown]
